FAERS Safety Report 8839578 (Version 1)
Quarter: 2012Q4

REPORT INFORMATION
  Report Type: 
  Country: CN (occurrence: CN)
  Receive Date: 20121015
  Receipt Date: 20121015
  Transmission Date: 20130627
  Serious: Yes (Death)
  Sender: FDA-Public Use
  Company Number: PHHY2012CN090910

PATIENT

DRUGS (1)
  1. CICLOSPORIN [Suspect]

REACTIONS (1)
  - Haemorrhage intracranial [Fatal]
